FAERS Safety Report 12317690 (Version 1)
Quarter: 2016Q2

REPORT INFORMATION
  Report Type: Spontaneous
  Country: US (occurrence: US)
  Receive Date: 20160429
  Receipt Date: 20160429
  Transmission Date: 20160815
  Serious: No
  Sender: FDA-Public Use
  Company Number: US-BAYER-2016-078330

PATIENT
  Age: 67 Year
  Sex: Female
  Weight: 50.34 kg

DRUGS (3)
  1. CLARITIN-D 24 HOUR [Suspect]
     Active Substance: LORATADINE\PSEUDOEPHEDRINE SULFATE
     Indication: SEASONAL ALLERGY
     Dosage: 1 DF, ONCE
     Route: 048
     Dates: start: 20160412, end: 20160412
  2. FISH OIL [Concomitant]
     Active Substance: FISH OIL
  3. CALCIUM [Concomitant]
     Active Substance: CALCIUM

REACTIONS (5)
  - Feeling abnormal [None]
  - Product formulation issue [None]
  - Tachyphrenia [None]
  - Psychomotor hyperactivity [None]
  - Insomnia [None]

NARRATIVE: CASE EVENT DATE: 20160412
